FAERS Safety Report 7381871-6 (Version None)
Quarter: 2011Q1

REPORT INFORMATION
  Report Type: 
  Country: None (occurrence: None)
  Receive Date: 20110329
  Receipt Date: 20110316
  Transmission Date: 20110831
  Serious: Yes (Hospitalization)
  Sender: FDA-Public Use
  Company Number: PHHY2011FR21796

PATIENT
  Sex: Female

DRUGS (2)
  1. LEELOO [Suspect]
     Indication: CONTRACEPTION
     Dosage: 1 DF DAILY DURING 21 DAYS PER MONTH
     Route: 048
     Dates: start: 20100920, end: 20101209
  2. TERBINAFINE HCL [Suspect]
     Indication: FUNGAL INFECTION
     Dosage: UNK
     Route: 048
     Dates: start: 20101105, end: 20101208

REACTIONS (9)
  - HEPATOMEGALY [None]
  - ASPARTATE AMINOTRANSFERASE INCREASED [None]
  - PRURITUS [None]
  - ALANINE AMINOTRANSFERASE INCREASED [None]
  - BLOOD BILIRUBIN INCREASED [None]
  - HEPATITIS CHOLESTATIC [None]
  - JAUNDICE [None]
  - GAMMA-GLUTAMYLTRANSFERASE INCREASED [None]
  - BLOOD ALKALINE PHOSPHATASE INCREASED [None]
